FAERS Safety Report 5498405-3 (Version None)
Quarter: 2007Q4

REPORT INFORMATION
  Report Type: 
  Country: None (occurrence: None)
  Receive Date: 20071025
  Receipt Date: 20071018
  Transmission Date: 20080405
  Serious: Yes (Hospitalization)
  Sender: FDA-Public Use
  Company Number: JP-MERCK-0708USA05547

PATIENT
  Age: 77 Year
  Sex: Female
  Weight: 40 kg

DRUGS (8)
  1. FOSAMAX [Suspect]
     Indication: OSTEOPOROSIS
     Route: 048
     Dates: start: 20060930, end: 20070725
  2. ROSEOL [Suspect]
     Indication: BACK PAIN
     Route: 048
     Dates: start: 20060918, end: 20070413
  3. ROSEOL [Suspect]
     Route: 048
     Dates: start: 20070613, end: 20070725
  4. ROSEOL [Suspect]
     Indication: ANTIINFLAMMATORY THERAPY
     Route: 048
     Dates: start: 20060918, end: 20070413
  5. ROSEOL [Suspect]
     Route: 048
     Dates: start: 20070613, end: 20070725
  6. ALFACALCIDOL [Concomitant]
     Indication: OSTEOPOROSIS
     Route: 048
     Dates: start: 20070613, end: 20070725
  7. ATENENTOIN [Concomitant]
     Indication: PROPHYLAXIS
     Route: 048
     Dates: start: 20070613, end: 20070725
  8. AMLODIPINE [Concomitant]
     Indication: HYPERTENSION
     Route: 048
     Dates: start: 20070711, end: 20070725

REACTIONS (1)
  - GASTRIC ULCER HAEMORRHAGE [None]
